FAERS Safety Report 7809654-0 (Version None)
Quarter: 2011Q4

REPORT INFORMATION
  Report Type: 
  Country: None (occurrence: None)
  Receive Date: 20111012
  Receipt Date: 20111007
  Transmission Date: 20120403
  Serious: Yes (Hospitalization)
  Sender: FDA-Public Use
  Company Number: US-GLAXOSMITHKLINE-A0791871A

PATIENT
  Age: 61 Year
  Sex: Female
  Weight: 74.5 kg

DRUGS (10)
  1. PROTONIX [Concomitant]
  2. AVANDIA [Suspect]
     Indication: DIABETES MELLITUS
     Route: 048
     Dates: end: 20070601
  3. AVANDAMET [Suspect]
     Indication: DIABETES MELLITUS
     Dates: start: 20030618, end: 20060201
  4. AMARYL [Concomitant]
  5. PIROXICAM [Concomitant]
  6. TEMAZEPAM [Concomitant]
  7. LIPITOR [Concomitant]
  8. GLUCOPHAGE [Concomitant]
  9. ASPIRIN [Concomitant]
  10. LISINOPRIL [Concomitant]

REACTIONS (3)
  - MYOCARDIAL INFARCTION [None]
  - CORONARY ARTERY DISEASE [None]
  - CARDIAC DISORDER [None]
